FAERS Safety Report 24948533 (Version 1)
Quarter: 2025Q1

REPORT INFORMATION
  Report Type: Report from Study
  Country: US (occurrence: US)
  Receive Date: 20250210
  Receipt Date: 20250210
  Transmission Date: 20250409
  Serious: Yes (Other)
  Sender: RECORDATI
  Company Number: US-ORPHANEU-2025000772

PATIENT

DRUGS (20)
  1. CYSTADANE [Suspect]
     Active Substance: BETAINE
     Indication: Homocystinuria
     Dosage: 3 MG, BID (POWDER)
     Route: 048
     Dates: start: 20140728
  2. CYSTADANE [Suspect]
     Active Substance: BETAINE
     Dosage: 3 MG, BID (POWDER)
     Route: 048
     Dates: start: 20170828
  3. CYSTADANE [Suspect]
     Active Substance: BETAINE
     Dosage: 3 MG, BID
     Route: 048
     Dates: start: 20210115
  4. CYSTADANE [Suspect]
     Active Substance: BETAINE
     Dosage: 3 MG, BID (POWDER)
     Route: 048
     Dates: end: 20250103
  5. CYSTADANE [Suspect]
     Active Substance: BETAINE
     Dosage: 3 SCOOPS, BID
     Route: 048
     Dates: start: 202501
  6. ALENDRONATE SODIUM [Concomitant]
     Active Substance: ALENDRONATE SODIUM
     Indication: Product used for unknown indication
     Dosage: 70 MG, QW
     Route: 048
     Dates: start: 19850601
  7. ASPIRIN [Concomitant]
     Active Substance: ASPIRIN
     Indication: Product used for unknown indication
     Dosage: 81 MG, QD, ADULT LOW STRENGTH
     Route: 048
     Dates: start: 19760601
  8. CARISOPRODOL [Concomitant]
     Active Substance: CARISOPRODOL
     Indication: Product used for unknown indication
     Route: 048
     Dates: start: 20140801
  9. CILOSTAZOL [Concomitant]
     Active Substance: CILOSTAZOL
     Indication: Product used for unknown indication
     Dosage: 100 MG, QD, TABLET
     Route: 048
     Dates: start: 20220101
  10. DEXILANT [Concomitant]
     Active Substance: DEXLANSOPRAZOLE
     Indication: Product used for unknown indication
     Dosage: 30 MG, QD
     Route: 048
     Dates: start: 20120801
  11. DILTIAZEM HYDROCHLORIDE [Concomitant]
     Active Substance: DILTIAZEM HYDROCHLORIDE
     Indication: Product used for unknown indication
     Dosage: 240 MG, QD, ER BEADS
     Route: 048
     Dates: start: 19850801
  12. DIPYRIDAMOLE [Concomitant]
     Active Substance: DIPYRIDAMOLE
     Indication: Product used for unknown indication
     Dosage: 50 MG, BID
     Route: 048
     Dates: start: 19760301
  13. HUMIRA [Concomitant]
     Active Substance: ADALIMUMAB
     Indication: Product used for unknown indication
     Dosage: 40 MG/ 0.4 ML, Q2W, 2 PEN
     Route: 058
     Dates: start: 20241205, end: 20250117
  14. IBUPROFEN [Concomitant]
     Active Substance: IBUPROFEN
     Indication: Product used for unknown indication
     Route: 048
     Dates: start: 20140601
  15. METFORMIN HYDROCHLORIDE [Concomitant]
     Active Substance: METFORMIN HYDROCHLORIDE
     Indication: Product used for unknown indication
     Dosage: 850 MG, TID, TABLET
     Route: 048
     Dates: start: 20240325
  16. OMEPRAZOLE [Concomitant]
     Active Substance: OMEPRAZOLE
     Indication: Product used for unknown indication
     Dosage: 20 MG, QD
     Route: 048
     Dates: start: 20150101
  17. OZEMPIC [Concomitant]
     Active Substance: SEMAGLUTIDE
     Indication: Product used for unknown indication
     Dosage: 2 MG/ 3 ML, QW
     Route: 058
     Dates: start: 20250120
  18. SERTRALINE HYDROCHLORIDE [Concomitant]
     Active Substance: SERTRALINE HYDROCHLORIDE
     Indication: Product used for unknown indication
     Dosage: 50 MG, QD, TABLET
     Route: 048
     Dates: start: 20221218
  19. SOTALOL HYDROCHLORIDE [Concomitant]
     Active Substance: SOTALOL HYDROCHLORIDE
     Indication: Product used for unknown indication
     Dosage: 80 MG, BID
     Route: 048
     Dates: start: 20220401
  20. TIZANIDINE HYDROCHLORIDE [Concomitant]
     Active Substance: TIZANIDINE HYDROCHLORIDE
     Indication: Product used for unknown indication
     Route: 048
     Dates: start: 20200302

REACTIONS (1)
  - Thrombosis [Unknown]

NARRATIVE: CASE EVENT DATE: 20250113
